FAERS Safety Report 6682286-6 (Version None)
Quarter: 2010Q2

REPORT INFORMATION
  Report Type: 
  Country: None (occurrence: None)
  Receive Date: 20100414
  Receipt Date: 20100414
  Transmission Date: 20101027
  Serious: Yes (Other)
  Sender: FDA-Public Use
  Company Number: None

PATIENT
  Age: 53 Year
  Sex: Male
  Weight: 85.2762 kg

DRUGS (2)
  1. CRESTOR [Suspect]
     Indication: BLOOD CHOLESTEROL INCREASED
     Dosage: 10 MG. BEDTIME BY MOUTH
     Route: 048
     Dates: start: 20090701, end: 20100320
  2. GEMFIBROZIL [Concomitant]

REACTIONS (11)
  - AMNESIA [None]
  - CHILLS [None]
  - CONSTIPATION [None]
  - DEPERSONALISATION [None]
  - DISTURBANCE IN ATTENTION [None]
  - ERECTILE DYSFUNCTION [None]
  - MENTAL STATUS CHANGES [None]
  - MUSCLE SPASMS [None]
  - NAUSEA [None]
  - PYREXIA [None]
  - SYSTEMIC LUPUS ERYTHEMATOSUS [None]
